FAERS Safety Report 15439890 (Version 1)
Quarter: 2018Q3

REPORT INFORMATION
  Report Type: Spontaneous
  Country: DE (occurrence: DE)
  Receive Date: 20180928
  Receipt Date: 20180928
  Transmission Date: 20181010
  Serious: Yes (Other)
  Sender: FDA-Public Use
  Company Number: DE-TEVA-2018-DE-956370

PATIENT
  Sex: Male

DRUGS (1)
  1. VALSARTAN?RATIOPHARM 160 MG FILMTABLETTEN [Suspect]
     Active Substance: VALSARTAN
     Indication: BLOOD PRESSURE ABNORMAL
     Dosage: 320 MILLIGRAM DAILY;
     Route: 048

REACTIONS (1)
  - Skin cancer [Unknown]
